FAERS Safety Report 11580833 (Version 4)
Quarter: 2016Q4

REPORT INFORMATION
  Report Type: Report from Study
  Country: CA (occurrence: CA)
  Receive Date: 20151001
  Receipt Date: 20161103
  Transmission Date: 20170206
  Serious: Yes (Other)
  Sender: FDA-Public Use
  Company Number: PHHY2013CA119062

PATIENT
  Age: 62 Year
  Sex: Female

DRUGS (4)
  1. ACLASTA [Suspect]
     Active Substance: ZOLEDRONIC ACID
     Indication: OSTEOPOROSIS
     Dosage: 5 MG,
     Route: 042
     Dates: start: 20121031
  2. ACLASTA [Suspect]
     Active Substance: ZOLEDRONIC ACID
     Dosage: UNK
     Route: 065
     Dates: start: 20131023
  3. ACLASTA [Suspect]
     Active Substance: ZOLEDRONIC ACID
     Dosage: UNK
     Route: 065
     Dates: start: 20141031
  4. ACLASTA [Suspect]
     Active Substance: ZOLEDRONIC ACID
     Dosage: UNK
     Route: 065
     Dates: start: 20151014

REACTIONS (9)
  - Fall [Unknown]
  - Peripheral swelling [Unknown]
  - Road traffic accident [Unknown]
  - Spinal compression fracture [Recovering/Resolving]
  - Ankle fracture [Unknown]
  - Foot fracture [Unknown]
  - Sternal fracture [Unknown]
  - Gait disturbance [Unknown]
  - Rib fracture [Unknown]

NARRATIVE: CASE EVENT DATE: 20131018
